FAERS Safety Report 5258669-8 (Version None)
Quarter: 2007Q1

REPORT INFORMATION
  Report Type: 
  Country: None (occurrence: None)
  Receive Date: 20070306
  Receipt Date: 20070306
  Transmission Date: 20070707
  Serious: Yes (Disabling)
  Sender: FDA-Public Use
  Company Number: None

PATIENT
  Age: 82 Year
  Sex: Female
  Weight: 63.5036 kg

DRUGS (2)
  1. ZICAM COLD REMEDY NASAL GEL [Suspect]
     Indication: COUGH
     Dosage: AS DIRECTED AS DIRECTED NASAL
     Route: 045
     Dates: start: 20060701
  2. ZICAM COLD REMEDY NASAL GEL [Suspect]
     Indication: NASAL CONGESTION
     Dosage: AS DIRECTED AS DIRECTED NASAL
     Route: 045
     Dates: start: 20060701

REACTIONS (3)
  - AGEUSIA [None]
  - ANOSMIA [None]
  - DEPRESSION [None]
